FAERS Safety Report 7551716-X (Version None)
Quarter: 2011Q2

REPORT INFORMATION
  Report Type: 
  Country: None (occurrence: None)
  Receive Date: 20110616
  Receipt Date: 20110531
  Transmission Date: 20111010
  Serious: Yes (Other)
  Sender: FDA-Public Use
  Company Number: A0793841A

PATIENT
  Age: 62 Year
  Sex: Female

DRUGS (1)
  1. AVANDIA [Suspect]
     Indication: DIABETES MELLITUS
     Dosage: 4U UNKNOWN
     Route: 048
     Dates: start: 20000101, end: 20060101

REACTIONS (4)
  - ABASIA [None]
  - DYSPNOEA [None]
  - SWELLING [None]
  - CARDIAC FAILURE CONGESTIVE [None]
